FAERS Safety Report 8544344-0 (Version None)
Quarter: 2012Q2

REPORT INFORMATION
  Report Type: 
  Country: None (occurrence: None)
  Receive Date: 20120416
  Receipt Date: 20100609
  Transmission Date: 20120825
  Serious: Yes (Other)
  Sender: FDA-Public Use
  Company Number: PHHY2010US28565

PATIENT
  Age: 67 Year
  Sex: Female

DRUGS (2)
  1. ROGAINE [Suspect]
     Indication: ALOPECIA
     Dosage: LOCAL
  2. DIOVAN [Suspect]
     Dosage: 80 MG

REACTIONS (6)
  - ABDOMINAL DISCOMFORT [None]
  - DIZZINESS [None]
  - BLOOD PRESSURE DECREASED [None]
  - LETHARGY [None]
  - NAUSEA [None]
  - FATIGUE [None]
